FAERS Safety Report 13520860 (Version 1)
Quarter: 2017Q2

REPORT INFORMATION
  Report Type: Report from Study
  Country: US (occurrence: US)
  Receive Date: 20170508
  Receipt Date: 20170508
  Transmission Date: 20170830
  Serious: Yes (Other)
  Sender: FDA-Public Use
  Company Number: US-ROCHE-1930246

PATIENT
  Age: 81 Year
  Sex: Female
  Weight: 46.3 kg

DRUGS (2)
  1. BEVACIZUMAB [Suspect]
     Active Substance: BEVACIZUMAB
     Indication: MALIGNANT MELANOMA
     Dosage: MOST RECENT DOSE OF BEVACIZUMAB PRIOR TO THE EVENT: 25/JUL/2016
     Route: 042
     Dates: start: 20141013
  2. IPILIMUMAB [Suspect]
     Active Substance: IPILIMUMAB
     Indication: MALIGNANT MELANOMA
     Dosage: MOST RECENT DOSE OF IPILIMUMAB PRIOR TO THE EVENT: 25/JUL/2016
     Route: 042
     Dates: start: 20141215

REACTIONS (1)
  - Face oedema [Unknown]
